FAERS Safety Report 20705945 (Version 1)
Quarter: 2022Q2

REPORT INFORMATION
  Report Type: Spontaneous
  Country: SI (occurrence: SI)
  Receive Date: 20220413
  Receipt Date: 20220413
  Transmission Date: 20220721
  Serious: Yes (Life-Threatening, Hospitalization, Other)
  Sender: FDA-Public Use
  Company Number: SI-NOVARTISPH-NVSC2022SI082342

PATIENT
  Sex: Male

DRUGS (17)
  1. ELTROMBOPAG OLAMINE [Suspect]
     Active Substance: ELTROMBOPAG OLAMINE
     Indication: Immune thrombocytopenia
     Dosage: 50 MG, QD
     Route: 065
     Dates: start: 20210805
  2. ELTROMBOPAG OLAMINE [Suspect]
     Active Substance: ELTROMBOPAG OLAMINE
     Dosage: 75 MG
     Route: 065
     Dates: start: 20210817, end: 20210823
  3. ELTROMBOPAG OLAMINE [Suspect]
     Active Substance: ELTROMBOPAG OLAMINE
     Dosage: 50 MG
     Route: 065
     Dates: start: 20210827
  4. ELTROMBOPAG OLAMINE [Suspect]
     Active Substance: ELTROMBOPAG OLAMINE
     Dosage: 75 MG, QD
     Route: 065
     Dates: start: 20210902, end: 20210916
  5. CYCLOSPORINE [Suspect]
     Active Substance: CYCLOSPORINE
     Indication: Product used for unknown indication
     Dosage: UNK (2 X 100 MG)
     Route: 065
     Dates: start: 20211230, end: 20220128
  6. SULFAMETHOXAZOLE\TRIMETHOPRIM [Suspect]
     Active Substance: SULFAMETHOXAZOLE\TRIMETHOPRIM
     Indication: COVID-19 pneumonia
     Dosage: UNK
     Route: 065
  7. IVIGLOB EX [Concomitant]
     Active Substance: HUMAN IMMUNOGLOBULIN G
     Indication: Product used for unknown indication
     Dosage: UNK
     Route: 065
  8. MEDROL [Concomitant]
     Active Substance: METHYLPREDNISOLONE
     Indication: Product used for unknown indication
     Dosage: 1 MG/KG
     Route: 065
     Dates: start: 202102
  9. MEDROL [Concomitant]
     Active Substance: METHYLPREDNISOLONE
     Dosage: 32 MG
     Route: 065
     Dates: start: 20210908
  10. MEDROL [Concomitant]
     Active Substance: METHYLPREDNISOLONE
     Dosage: 8 MG, QD
     Route: 065
  11. MEDROL [Concomitant]
     Active Substance: METHYLPREDNISOLONE
     Dosage: 16 MG
     Route: 065
  12. MEDROL [Concomitant]
     Active Substance: METHYLPREDNISOLONE
     Dosage: UNK (4 MCG / KG)
     Route: 065
  13. METHYLPREDNISOLONE [Concomitant]
     Active Substance: METHYLPREDNISOLONE
     Indication: Product used for unknown indication
     Dosage: 1 MG/KG
     Route: 065
  14. MABTHERA [Concomitant]
     Active Substance: RITUXIMAB
     Indication: Product used for unknown indication
     Dosage: (THREE DOSES IN THREE WEEK)
     Route: 065
     Dates: start: 200906
  15. MABTHERA [Concomitant]
     Active Substance: RITUXIMAB
     Dosage: (TWO DOSES)
     Route: 065
     Dates: start: 201002
  16. PRIVIGEN [Concomitant]
     Active Substance: HUMAN IMMUNOGLOBULIN G
     Indication: Product used for unknown indication
     Dosage: UNK (TWO DOSES)
     Route: 065
  17. DEXAMETHASONE [Concomitant]
     Active Substance: DEXAMETHASONE
     Indication: Product used for unknown indication
     Dosage: UNK
     Route: 065
     Dates: start: 202012

REACTIONS (10)
  - COVID-19 pneumonia [Recovered/Resolved]
  - Acute respiratory failure [Recovered/Resolved]
  - Osteoporotic fracture [Unknown]
  - Purpura [Recovering/Resolving]
  - Cushingoid [Unknown]
  - Central obesity [Unknown]
  - Skin striae [Unknown]
  - Platelet count decreased [Unknown]
  - Drug resistance [Unknown]
  - Drug ineffective [Unknown]

NARRATIVE: CASE EVENT DATE: 20210807
